FAERS Safety Report 4276508-9 (Version None)
Quarter: 2004Q1

REPORT INFORMATION
  Report Type: 
  Country: None (occurrence: None)
  Receive Date: 20040120
  Receipt Date: 20040105
  Transmission Date: 20041129
  Serious: Yes (Hospitalization)
  Sender: FDA-Public Use
  Company Number: 2004UW00068

PATIENT
  Age: 85 Year
  Sex: Male
  Weight: 95.2554 kg

DRUGS (4)
  1. CRESTOR [Suspect]
     Indication: BLOOD CHOLESTEROL INCREASED
     Dosage: 10 MG PO
     Route: 048
     Dates: start: 20031113
  2. WARFARIN SODIUM [Concomitant]
  3. ACCUPRIL [Concomitant]
  4. PLAVIX [Concomitant]

REACTIONS (5)
  - BLOOD DISORDER [None]
  - CLOSTRIDIAL INFECTION [None]
  - DIARRHOEA [None]
  - MYALGIA [None]
  - OEDEMA PERIPHERAL [None]
